FAERS Safety Report 15496376 (Version 1)
Quarter: 2018Q4

REPORT INFORMATION
  Report Type: Report from Study
  Country: US (occurrence: US)
  Receive Date: 20181012
  Receipt Date: 20181012
  Transmission Date: 20190205
  Serious: Yes (Hospitalization)
  Sender: FDA-Public Use
  Company Number: PHEH2018US042865

PATIENT
  Sex: Female
  Weight: 107.94 kg

DRUGS (1)
  1. COSENTYX [Suspect]
     Active Substance: SECUKINUMAB
     Indication: PSORIATIC ARTHROPATHY
     Dosage: 300 MG, QMO (VIAL)
     Route: 058
     Dates: start: 20161019

REACTIONS (2)
  - Dysgeusia [Unknown]
  - Colitis [Unknown]

NARRATIVE: CASE EVENT DATE: 2017
